FAERS Safety Report 8610317-2 (Version None)
Quarter: 2012Q3

REPORT INFORMATION
  Report Type: 
  Country: None (occurrence: None)
  Receive Date: 20120822
  Receipt Date: 20120815
  Transmission Date: 20120928
  Serious: Yes (Other)
  Sender: FDA-Public Use
  Company Number: PHHY2010CA70671

PATIENT
  Sex: Male

DRUGS (4)
  1. BUDESONIDE [Concomitant]
  2. LOMOTIL [Concomitant]
  3. SANDOSTATIN [Suspect]
     Route: 058
  4. SANDOSTATIN LAR [Suspect]
     Indication: COLITIS MICROSCOPIC
     Dosage: 20 MG, QMO
     Route: 030
     Dates: start: 20101018

REACTIONS (8)
  - FLATULENCE [None]
  - NAUSEA [None]
  - GASTROINTESTINAL INFLAMMATION [None]
  - DIARRHOEA [None]
  - DIZZINESS [None]
  - BLOOD PRESSURE SYSTOLIC INCREASED [None]
  - BILIARY COLIC [None]
  - ABDOMINAL PAIN [None]
